FAERS Safety Report 15003722 (Version 5)
Quarter: 2018Q3

REPORT INFORMATION
  Report Type: Report from Study
  Country: DE (occurrence: DE)
  Receive Date: 20180613
  Receipt Date: 20180926
  Transmission Date: 20181010
  Serious: Yes (Hospitalization, Other)
  Sender: FDA-Public Use
  Company Number: DE-BAXTER-2017BAX041255

PATIENT
  Age: 58 Year
  Sex: Female
  Weight: 55 kg

DRUGS (20)
  1. PREDNISOLONE. [Suspect]
     Active Substance: PREDNISOLONE
     Dosage: 20 MG, QD (CUMULATIVE DOSE 480MG)
     Route: 065
     Dates: start: 20170213
  2. EXEMESTANE. [Suspect]
     Active Substance: EXEMESTANE
     Indication: BREAST CANCER METASTATIC
     Dosage: CUMULATIVE DOSE TO FIRST REACTION 7250 MG
     Route: 048
     Dates: start: 20160523, end: 20170126
  3. AFINITOR [Suspect]
     Active Substance: EVEROLIMUS
     Indication: BREAST CANCER METASTATIC
     Dosage: CUMULATIVE DOSE TO FIRST REACTION WAS 2260 MG, 10 MG, QD
     Route: 048
     Dates: start: 20160523, end: 20160808
  4. AFINITOR [Suspect]
     Active Substance: EVEROLIMUS
     Route: 048
     Dates: start: 20160901, end: 20170126
  5. ACETYLSALICYLSAEURE [Concomitant]
     Active Substance: ASPIRIN
     Indication: PROPHYLAXIS
     Dosage: 100 MG, EVERY DAY, CUMULATIVE DOSE TO FIRST REACTION WAS 1500 MG
     Route: 048
     Dates: start: 20171010
  6. MABTHERA [Suspect]
     Active Substance: RITUXIMAB
     Indication: B-CELL LYMPHOMA
     Dosage: DAILY DOSE: 700 MG MILLGRAM(S) EVERY DAYS, CUMULATIVE DOSE TO FIRST REACTION 700 MG
     Route: 042
     Dates: start: 20171011, end: 20171011
  7. PEGFILGRASTIM [Suspect]
     Active Substance: PEGFILGRASTIM
     Dosage: 6 MG, QD
     Route: 058
     Dates: start: 20171012, end: 20171012
  8. TAMSULOSIN [Concomitant]
     Active Substance: TAMSULOSIN
     Indication: BENIGN PROSTATIC HYPERPLASIA
     Dosage: 4 MG, QD (CUMULATIVE DOSE TO FIRST REACTION 60 MG)
     Route: 048
     Dates: start: 20171010
  9. PREDNISOLON [Concomitant]
     Active Substance: PREDNISOLONE
     Indication: PRODUCT USED FOR UNKNOWN INDICATION
     Dosage: DOSAGE FORM: UNSPECIFIED, CUMULATIVE DOSE 480 MG
     Route: 048
     Dates: start: 20170213
  10. DOXORUBICIN [Suspect]
     Active Substance: DOXORUBICIN
     Indication: B-CELL LYMPHOMA
     Dosage: DAILY DOSE: 95 MG MILLGRAM (S) EVERY DAYS, CUMULATIVE DOSE TO FIRST REACTION 95 MG
     Route: 042
     Dates: start: 20171012, end: 20171012
  11. PEGFILGRASTIM [Suspect]
     Active Substance: PEGFILGRASTIM
     Indication: B-CELL LYMPHOMA
     Dosage: DAILY DOSE: 6 MG MILLGRAM (S) EVERY DAYS
     Route: 058
     Dates: start: 20171015, end: 20171015
  12. SIMVASTATIN. [Concomitant]
     Active Substance: SIMVASTATIN
     Indication: HYPERCHOLESTEROLAEMIA
     Dosage: CUMULATIVE DOSE TO FIRST REACTION 300 MG
     Route: 048
     Dates: start: 20171010
  13. ENDOXAN 1G [Suspect]
     Active Substance: CYCLOPHOSPHAMIDE
     Indication: B-CELL LYMPHOMA
     Dosage: 1400 MG PER EVERY DAY, CUMULATIVE DOSE TO FIRST REACTION 1400 MG, SOLUTION FOR INFUSION
     Route: 042
     Dates: start: 20171012, end: 20171012
  14. MABTHERA [Suspect]
     Active Substance: RITUXIMAB
     Dosage: 15400 MG, UNK
     Route: 042
  15. SIMVASTATIN. [Concomitant]
     Active Substance: SIMVASTATIN
     Dosage: 20 MG, QD (CUMULATIVE DOSE TO FIRST REACTION 300 MG)
     Route: 048
     Dates: start: 20171010
  16. PREDNISOLONE. [Suspect]
     Active Substance: PREDNISOLONE
     Indication: B-CELL LYMPHOMA
     Dosage: DAILY DOSE: 500 MG MILLGRAM(S) EVERY DAYS, CUMULATIVE DOSE TO FIRST REACTION 500 MG
     Route: 048
     Dates: start: 20171012, end: 20171012
  17. PREDNISOLONE. [Suspect]
     Active Substance: PREDNISOLONE
     Indication: PRODUCT USED FOR UNKNOWN INDICATION
     Dosage: 20 MG, QD
     Route: 048
     Dates: start: 20171113
  18. VINCRISTINE [Suspect]
     Active Substance: VINCRISTINE
     Indication: B-CELL LYMPHOMA
     Dosage: DAILY DOSE: 3.12 MG MILLGRAM(S) EVERY DAYS, CUMULATIVE DOSE TO FIRST REACTION 3MG
     Route: 042
     Dates: start: 20171012, end: 20171012
  19. ASPIRIN. [Concomitant]
     Active Substance: ASPIRIN
     Indication: PROPHYLAXIS
     Dosage: 100 MG, QD (CUMULATIVE DOSE TO FIRST REACTION WAS 1500 MG)
     Route: 048
     Dates: start: 20171010
  20. ZOPLICONE [Concomitant]
     Active Substance: ZOPICLONE
     Indication: SLEEP DISORDER THERAPY
     Dosage: 7.5 MG PER EVERY DAY
     Route: 048
     Dates: start: 20171010

REACTIONS (5)
  - Off label use [Unknown]
  - Pneumonia [Recovered/Resolved]
  - Pneumonitis [Not Recovered/Not Resolved]
  - Product use in unapproved indication [Unknown]
  - Dyspnoea [Not Recovered/Not Resolved]

NARRATIVE: CASE EVENT DATE: 20170126
